FAERS Safety Report 14559749 (Version 1)
Quarter: 2018Q1

REPORT INFORMATION
  Report Type: Spontaneous
  Country: US (occurrence: US)
  Receive Date: 20180220
  Receipt Date: 20180220
  Transmission Date: 20180509
  Serious: Yes (Life-Threatening, Hospitalization, Disabling, Other)
  Sender: FDA-Public Use
  Company Number: None

PATIENT
  Sex: Female
  Weight: 87.75 kg

DRUGS (6)
  1. TRINTELLIX [Suspect]
     Active Substance: VORTIOXETINE HYDROBROMIDE
     Indication: MAJOR DEPRESSION
     Dosage: ?          QUANTITY:1 TABLET(S);?
     Route: 048
     Dates: start: 20171020, end: 20171116
  2. XANAX [Concomitant]
     Active Substance: ALPRAZOLAM
  3. SINGULAIR [Concomitant]
     Active Substance: MONTELUKAST SODIUM
  4. ADULT GUMMY VITAMINS [Concomitant]
  5. DELIANT [Concomitant]
  6. HCTZ [Concomitant]
     Active Substance: HYDROCHLOROTHIAZIDE

REACTIONS (7)
  - Anger [None]
  - Legal problem [None]
  - Hallucination, auditory [None]
  - Mania [None]
  - Mental impairment [None]
  - Anxiety [None]
  - Sleep disorder [None]

NARRATIVE: CASE EVENT DATE: 20171116
